FAERS Safety Report 8179814-0 (Version None)
Quarter: 2012Q1

REPORT INFORMATION
  Report Type: 
  Country: None (occurrence: None)
  Receive Date: 20120302
  Receipt Date: 20111226
  Transmission Date: 20120608
  Serious: Yes (Hospitalization)
  Sender: FDA-Public Use
  Company Number: US-ASTELLAS-2011US008700

PATIENT
  Sex: Male
  Weight: 79 kg

DRUGS (2)
  1. ERLOTINIB HYDROCHLORIDE [Suspect]
     Indication: EPENDYMOMA MALIGNANT
     Dosage: 125 MG, UID/QD
     Route: 048
     Dates: start: 20111202, end: 20111214
  2. ERLOTINIB HYDROCHLORIDE [Suspect]
     Dosage: 125 MG, UID/QD
     Route: 048
     Dates: start: 20111223

REACTIONS (1)
  - CONVULSION [None]
